FAERS Safety Report 5504864-X (Version None)
Quarter: 2007Q4

REPORT INFORMATION
  Report Type: 
  Country: None (occurrence: None)
  Receive Date: 20071102
  Receipt Date: 20071024
  Transmission Date: 20080405
  Serious: Yes (Hospitalization, Other)
  Sender: FDA-Public Use
  Company Number: DE-WYE-G00514507

PATIENT
  Sex: Male

DRUGS (3)
  1. VENLAFAXINE HCL [Suspect]
     Dosage: 150 MG IN THE MORNING AND 75 MG AT NOON
     Route: 048
     Dates: start: 20061001, end: 20071008
  2. VENLAFAXINE HCL [Suspect]
     Route: 048
     Dates: start: 20071009, end: 20071016
  3. VENLAFAXINE HCL [Suspect]
     Route: 048
     Dates: start: 20071001

REACTIONS (12)
  - ANXIETY [None]
  - BLOOD PRESSURE INCREASED [None]
  - CHEST DISCOMFORT [None]
  - CHEST PAIN [None]
  - CRYING [None]
  - DRUG WITHDRAWAL CONVULSIONS [None]
  - DRUG WITHDRAWAL SYNDROME [None]
  - FACIAL SPASM [None]
  - HEART RATE INCREASED [None]
  - NECK PAIN [None]
  - RESPIRATORY DISTRESS [None]
  - RESTLESSNESS [None]
